FAERS Safety Report 16086099 (Version 8)
Quarter: 2020Q2

REPORT INFORMATION
  Report Type: Report from Study
  Country: US (occurrence: US)
  Receive Date: 20190318
  Receipt Date: 20200401
  Transmission Date: 20200713
  Serious: Yes (Hospitalization)
  Sender: FDA-Public Use
  Company Number: US-ACTELION-A-NJ2018-166573

PATIENT
  Age: 81 Year
  Sex: Female
  Weight: 54.88 kg

DRUGS (3)
  1. REVATIO [Concomitant]
     Active Substance: SILDENAFIL CITRATE
  2. ELIQUIS [Concomitant]
     Active Substance: APIXABAN
  3. VENTAVIS [Suspect]
     Active Substance: ILOPROST
     Indication: PULMONARY ARTERIAL HYPERTENSION
     Dosage: 5 MCG, 6-9 TIMES PER DAY
     Route: 055

REACTIONS (10)
  - Carbon dioxide increased [Unknown]
  - Epistaxis [Unknown]
  - Dementia [Unknown]
  - Gastrointestinal disorder [Unknown]
  - Dyspnoea [Unknown]
  - Hospitalisation [Unknown]
  - Heart rate increased [Unknown]
  - Pneumonia [Unknown]
  - Burning sensation [Unknown]
  - Rhinorrhoea [Not Recovered/Not Resolved]

NARRATIVE: CASE EVENT DATE: 20200315
